FAERS Safety Report 6655079-3 (Version None)
Quarter: 2010Q1

REPORT INFORMATION
  Report Type: 
  Country: None (occurrence: None)
  Receive Date: 20100329
  Receipt Date: 20100318
  Transmission Date: 20100710
  Serious: Yes (Hospitalization)
  Sender: FDA-Public Use
  Company Number: US-EISAI INC.-E7273-00139-CLI-US

PATIENT
  Sex: Male
  Weight: 81 kg

DRUGS (2)
  1. TARGRETIN [Suspect]
     Route: 048
     Dates: start: 20100219, end: 20100303
  2. SARGRAMOSTIM [Suspect]
     Dates: start: 20100216, end: 20100308

REACTIONS (2)
  - DISEASE PROGRESSION [None]
  - PANCYTOPENIA [None]
